FAERS Safety Report 15879726 (Version 2)
Quarter: 2019Q3

REPORT INFORMATION
  Report Type: Spontaneous
  Country: PL (occurrence: PL)
  Receive Date: 20190128
  Receipt Date: 20190701
  Transmission Date: 20191004
  Serious: Yes (Hospitalization, Other)
  Sender: FDA-Public Use
  Company Number: PL-MYLANLABS-2019M1006278

PATIENT
  Age: 65 Year
  Sex: Male

DRUGS (2)
  1. AMOXICILLIN/CLAVULANIC ACID [Suspect]
     Active Substance: AMOXICILLIN\CLAVULANIC ACID
     Indication: ANTIBIOTIC PROPHYLAXIS
     Dosage: UNK
  2. CLARITHROMYCIN. [Suspect]
     Active Substance: CLARITHROMYCIN
     Indication: SPINAL PAIN
     Dosage: UNK
     Route: 048

REACTIONS (20)
  - Condition aggravated [Unknown]
  - Skin oedema [Recovered/Resolved]
  - Skin lesion [Recovered/Resolved]
  - Drug hypersensitivity [Unknown]
  - Erythema [Recovered/Resolved]
  - Toxic epidermal necrolysis [Recovered/Resolved]
  - Peripheral swelling [Unknown]
  - Spondylitis [Unknown]
  - Dermatitis [Unknown]
  - Arthralgia [Unknown]
  - Muscle oedema [Unknown]
  - Spinal pain [Unknown]
  - Hypochromic anaemia [Unknown]
  - Pruritus [Recovered/Resolved]
  - Back pain [Recovered/Resolved]
  - Purulence [Recovered/Resolved]
  - Rash [Recovered/Resolved]
  - Drug ineffective [Recovered/Resolved]
  - Pain [Unknown]
  - Gait disturbance [Unknown]
